FAERS Safety Report 8326996-3 (Version None)
Quarter: 2012Q2

REPORT INFORMATION
  Report Type: 
  Country: None (occurrence: None)
  Receive Date: 20120501
  Receipt Date: 20120419
  Transmission Date: 20120825
  Serious: Yes (Hospitalization, Other)
  Sender: FDA-Public Use
  Company Number: JP-ROCHE-1061519

PATIENT
  Sex: Female
  Weight: 43 kg

DRUGS (2)
  1. OXALIPLATIN [Concomitant]
     Indication: RECTAL CANCER METASTATIC
     Route: 041
     Dates: start: 20120416, end: 20120416
  2. XELODA [Suspect]
     Indication: RECTAL CANCER METASTATIC
     Route: 048
     Dates: start: 20120416, end: 20120418

REACTIONS (4)
  - LOSS OF CONSCIOUSNESS [None]
  - CONTUSION [None]
  - FALL [None]
  - TRAUMATIC INTRACRANIAL HAEMORRHAGE [None]
